FAERS Safety Report 4622939-4 (Version None)
Quarter: 2005Q1

REPORT INFORMATION
  Report Type: 
  Country: None (occurrence: None)
  Receive Date: 20050329
  Receipt Date: 20050220
  Transmission Date: 20050727
  Serious: Yes (Death)
  Sender: FDA-Public Use
  Company Number: 10362

PATIENT
  Sex: 0

DRUGS (10)
  1. METHOTREXATE [Suspect]
     Indication: B-CELL TYPE ACUTE LEUKAEMIA
     Dosage: IV/IT
     Route: 042
  2. DEXAMETHASONE [Concomitant]
  3. CYCLOPHOSPHAMIDE [Concomitant]
  4. CYTARABINE [Concomitant]
  5. PREDNISOLONE [Concomitant]
  6. VINCRISTINE [Concomitant]
  7. IFOSFAMIDE [Concomitant]
  8. ETOPOSIDE [Concomitant]
  9. DOXORUBICIN HCL [Concomitant]
  10. VINDESINE [Concomitant]

REACTIONS (1)
  - MENINGITIS [None]
